FAERS Safety Report 18168144 (Version 2)
Quarter: 2021Q4

REPORT INFORMATION
  Report Type: Spontaneous
  Country: US (occurrence: US)
  Receive Date: 20200818
  Receipt Date: 20211004
  Transmission Date: 20220303
  Serious: No
  Sender: FDA-Public Use
  Company Number: US-OTSUKA-2020_016853

PATIENT
  Sex: Male

DRUGS (6)
  1. ABILIFY MAINTENA [Suspect]
     Active Substance: ARIPIPRAZOLE
     Indication: Delusional disorder, unspecified type
     Dosage: UNK
     Route: 065
     Dates: start: 20200630
  2. ABILIFY [Suspect]
     Active Substance: ARIPIPRAZOLE
     Indication: Delusional disorder, unspecified type
     Dosage: UNK
     Route: 048
     Dates: start: 201910
  3. ZOLOFT [Concomitant]
     Active Substance: SERTRALINE HYDROCHLORIDE
     Indication: Product used for unknown indication
     Dosage: 75 OR 100 FOR A WEEK
     Route: 065
  4. KLONOPIN [Concomitant]
     Active Substance: CLONAZEPAM
     Indication: Product used for unknown indication
     Dosage: FOR 4 DAYS
     Route: 065
  5. HALDOL [Concomitant]
     Active Substance: HALOPERIDOL
     Indication: Product used for unknown indication
     Dosage: 10 MG OR 15MG
     Route: 065
  6. SAPHRIS [Concomitant]
     Active Substance: ASENAPINE MALEATE
     Indication: Product used for unknown indication
     Dosage: UNK
     Route: 065

REACTIONS (5)
  - Adverse event [Unknown]
  - Thinking abnormal [Unknown]
  - Psychotic disorder [Unknown]
  - Depression [Unknown]
  - Drug ineffective for unapproved indication [Unknown]
